FAERS Safety Report 14690005 (Version 1)
Quarter: 2018Q1

REPORT INFORMATION
  Report Type: Spontaneous
  Country: US (occurrence: US)
  Receive Date: 20180328
  Receipt Date: 20180328
  Transmission Date: 20180509
  Serious: No
  Sender: FDA-Public Use
  Company Number: US-TEVA-2018-US-875425

PATIENT
  Sex: Female

DRUGS (1)
  1. METHOTREXATE. [Suspect]
     Active Substance: METHOTREXATE
     Route: 030

REACTIONS (4)
  - Injection site discolouration [Unknown]
  - Injection site pain [Unknown]
  - Injection site scab [Unknown]
  - Injection site haemorrhage [Unknown]
